FAERS Safety Report 9073157 (Version 1)
Quarter: 2013Q1

REPORT INFORMATION
  Report Type: Report from Study
  Country: US (occurrence: US)
  Receive Date: 20130129
  Receipt Date: 20130129
  Transmission Date: 20140127
  Serious: Yes (Other)
  Sender: FDA-Public Use
  Company Number: US-ABBOTT-12P-163-0942370-00

PATIENT
  Age: 88 Year
  Sex: Female
  Weight: 58.11 kg

DRUGS (4)
  1. HUMIRA 40 MG/0.8 ML PEN [Suspect]
     Indication: CROHN^S DISEASE
     Route: 058
     Dates: start: 20111104
  2. ENTOCORT [Concomitant]
     Indication: PRODUCT USED FOR UNKNOWN INDICATION
  3. ASACOL [Concomitant]
     Indication: PRODUCT USED FOR UNKNOWN INDICATION
  4. VITAMINS [Concomitant]
     Indication: PRODUCT USED FOR UNKNOWN INDICATION

REACTIONS (6)
  - Road traffic accident [Recovered/Resolved]
  - Sternal fracture [Recovering/Resolving]
  - Wrong technique in drug usage process [Unknown]
  - Emotional distress [Recovering/Resolving]
  - Nervousness [Recovering/Resolving]
  - Chest pain [Recovering/Resolving]
